FAERS Safety Report 25432316 (Version 1)
Quarter: 2025Q2

REPORT INFORMATION
  Report Type: Spontaneous
  Country: CN (occurrence: CN)
  Receive Date: 20250613
  Receipt Date: 20250613
  Transmission Date: 20250716
  Serious: Yes (Life-Threatening)
  Sender: BOEHRINGER INGELHEIM
  Company Number: CN-BoehringerIngelheim-2025-BI-076060

PATIENT
  Age: 76 Year
  Sex: Female
  Weight: 47.000 kg

DRUGS (2)
  1. ATROVENT [Suspect]
     Active Substance: IPRATROPIUM BROMIDE
     Indication: Dyspnoea
     Dates: start: 20250528, end: 20250528
  2. BUDESONIDE [Concomitant]
     Active Substance: BUDESONIDE
     Indication: Dyspnoea
     Dosage: SUSPENSION
     Dates: start: 20250528, end: 20250528

REACTIONS (6)
  - Tachypnoea [Recovering/Resolving]
  - Dyspnoea [Recovering/Resolving]
  - Palpitations [Recovering/Resolving]
  - Heart rate increased [Recovering/Resolving]
  - Oedema peripheral [Recovering/Resolving]
  - Orthopnoea [Recovering/Resolving]

NARRATIVE: CASE EVENT DATE: 20250528
